FAERS Safety Report 7236438-7 (Version None)
Quarter: 2011Q1

REPORT INFORMATION
  Report Type: 
  Country: None (occurrence: None)
  Receive Date: 20110120
  Receipt Date: 20110113
  Transmission Date: 20110831
  Serious: Yes (Other)
  Sender: FDA-Public Use
  Company Number: US-US-EMD SERONO, INC.-7036093

PATIENT
  Sex: Female

DRUGS (1)
  1. REBIF [Suspect]
     Indication: PRODUCT USED FOR UNKNOWN INDICATION
     Route: 058
     Dates: start: 20101008, end: 20101101

REACTIONS (6)
  - MUSCULAR WEAKNESS [None]
  - NAUSEA [None]
  - BLINDNESS [None]
  - DIZZINESS [None]
  - VISUAL IMPAIRMENT [None]
  - LIVER FUNCTION TEST ABNORMAL [None]
